FAERS Safety Report 4538709-1 (Version None)
Quarter: 2004Q4

REPORT INFORMATION
  Report Type: 
  Country: None (occurrence: None)
  Receive Date: 20041222
  Receipt Date: 20041206
  Transmission Date: 20050328
  Serious: Yes (Hospitalization)
  Sender: FDA-Public Use
  Company Number: USA041285520

PATIENT
  Age: 73 Year
  Sex: Female

DRUGS (5)
  1. HUMULIN N [Suspect]
     Indication: DIABETES MELLITUS
     Dosage: 40 U DAY
  2. HUMULIN R [Suspect]
     Indication: DIABETES MELLITUS
  3. FUROSEMIDE [Concomitant]
  4. TOPAL [Concomitant]
  5. ASPIRIN [Concomitant]

REACTIONS (5)
  - BLOOD GLUCOSE FLUCTUATION [None]
  - BRONCHITIS [None]
  - DIALYSIS [None]
  - PNEUMONIA [None]
  - RENAL FAILURE [None]
